FAERS Safety Report 4548863-3 (Version None)
Quarter: 2005Q1

REPORT INFORMATION
  Report Type: 
  Country: None (occurrence: None)
  Receive Date: 20041227
  Receipt Date: 20041007
  Transmission Date: 20050727
  Serious: No
  Sender: FDA-Public Use
  Company Number: 04P-163-0276576-00

PATIENT
  Sex: Male

DRUGS (7)
  1. HUMIRA [Suspect]
     Indication: PSORIATIC ARTHROPATHY
     Dosage: 40 MG, 1 IN 2 WK, SUBCUTANEOUS
     Route: 058
     Dates: start: 20040101
  2. LISINOPRIL [Concomitant]
  3. MULTIVITAMIN [Concomitant]
  4. TOCOPHEROL CONCENTRATE CAP [Concomitant]
  5. CALCIUM GLUCONATE [Concomitant]
  6. ACETAMINOPHEN W/ CODEINE [Concomitant]
  7. DARVOCET [Concomitant]

REACTIONS (3)
  - DRUG INEFFECTIVE [None]
  - MOBILITY DECREASED [None]
  - PSORIATIC ARTHROPATHY [None]
